FAERS Safety Report 14964874 (Version 1)
Quarter: 2018Q2

REPORT INFORMATION
  Report Type: Report from Study
  Country: AR (occurrence: AR)
  Receive Date: 20180601
  Receipt Date: 20180601
  Transmission Date: 20180711
  Serious: Yes (Hospitalization)
  Sender: FDA-Public Use
  Company Number: PHHY2018AR011420

PATIENT

DRUGS (2)
  1. COSENTYX [Suspect]
     Active Substance: SECUKINUMAB
     Indication: PSORIASIS
     Route: 065
  2. CICLOSPORINE [Concomitant]
     Active Substance: CYCLOSPORINE
     Indication: PSORIASIS
     Dosage: 300 MG, QD
     Route: 065
     Dates: end: 20171212

REACTIONS (5)
  - Cellulitis [Recovered/Resolved with Sequelae]
  - Hyperglycaemia [Recovered/Resolved with Sequelae]
  - Erythema [Recovered/Resolved with Sequelae]
  - Oedema peripheral [Recovered/Resolved with Sequelae]
  - Pyrexia [Recovered/Resolved with Sequelae]

NARRATIVE: CASE EVENT DATE: 20180409
